FAERS Safety Report 21964562 (Version 1)
Quarter: 2023Q1

REPORT INFORMATION
  Report Type: Spontaneous
  Country: IT (occurrence: IT)
  Receive Date: 20230207
  Receipt Date: 20230207
  Transmission Date: 20230418
  Serious: Yes (Life-Threatening, Hospitalization, Other)
  Sender: FDA-Public Use
  Company Number: IT-MLMSERVICE-20230130-4064648-1

PATIENT
  Age: 55 Year
  Sex: Female

DRUGS (1)
  1. MORPHINE SULFATE [Suspect]
     Active Substance: MORPHINE SULFATE
     Indication: Suicide attempt
     Dosage: SWALLOWING OVER A HUNDRED OF PILLS, INCLUDING MORPHINE AND OTHER ANALGESICS (EXACT DOSAGE UNKNOWN).
     Route: 065

REACTIONS (6)
  - Respiratory failure [Recovered/Resolved]
  - Catatonia [Recovering/Resolving]
  - Leukoencephalopathy [Recovering/Resolving]
  - Coma [Recovered/Resolved]
  - Overdose [Recovering/Resolving]
  - Toxicity to various agents [Recovering/Resolving]
